FAERS Safety Report 6199914 (Version 18)
Quarter: 2014Q1

REPORT INFORMATION
  Report Type: Spontaneous
  Country: US (occurrence: US)
  Receive Date: 20061221
  Receipt Date: 20140113
  Transmission Date: 20141002
  Serious: Yes (Other)
  Sender: FDA-Public Use
  Company Number: PHEH2006US15240

PATIENT
  Age: 53 Year
  Sex: Female

DRUGS (21)
  1. ZOMETA [Suspect]
     Dates: start: 2002
  2. COUMADIN [Concomitant]
  3. TAMOXIFEN [Concomitant]
  4. EFFEXOR [Concomitant]
  5. FEMARA [Concomitant]
  6. MICARDIS [Concomitant]
  7. ALLEGRA [Concomitant]
  8. NASONEX [Concomitant]
  9. XELODA [Concomitant]
  10. CLINDAMYCIN [Concomitant]
  11. PEPCID [Concomitant]
  12. PROCRIT                            /00909301/ [Concomitant]
  13. COMPAZINE [Concomitant]
  14. CIPROFLOXACIN [Concomitant]
  15. PROXETINE [Concomitant]
  16. PAXIL [Concomitant]
  17. K-DUR [Concomitant]
  18. TEQUIN [Concomitant]
  19. ADRIAMYCIN [Concomitant]
  20. NEUPOGEN [Concomitant]
  21. NAVELBINE [Concomitant]

REACTIONS (76)
  - Malignant melanoma [Unknown]
  - Second primary malignancy [Unknown]
  - Abscess [Unknown]
  - Renal cyst [Unknown]
  - Cholelithiasis [Unknown]
  - Lymphadenopathy mediastinal [Unknown]
  - Osteonecrosis of jaw [Unknown]
  - General physical health deterioration [Unknown]
  - Pain [Unknown]
  - Anxiety [Unknown]
  - Decreased interest [Unknown]
  - Malignant pleural effusion [Unknown]
  - Metastases to liver [Unknown]
  - Metastases to bone [Unknown]
  - Animal bite [Unknown]
  - Gingival oedema [Unknown]
  - Gingival erythema [Unknown]
  - Gingival bleeding [Unknown]
  - Bone loss [Unknown]
  - Periodontitis [Unknown]
  - Pulpitis dental [Unknown]
  - Sinonasal papilloma [Unknown]
  - Dental fistula [Unknown]
  - Sinusitis [Unknown]
  - Dizziness [Unknown]
  - Bone disorder [Unknown]
  - Coagulopathy [Unknown]
  - Depression [Unknown]
  - Febrile neutropenia [Unknown]
  - Hypomagnesaemia [Unknown]
  - Skin exfoliation [Unknown]
  - Osteoarthritis [Unknown]
  - Wound [Unknown]
  - Hypokalaemia [Unknown]
  - Metabolic alkalosis [Unknown]
  - Dyspnoea [Unknown]
  - Scoliosis [Unknown]
  - Spinal osteoarthritis [Unknown]
  - Cardiomyopathy [Unknown]
  - Arthralgia [Unknown]
  - Haemangioma [Unknown]
  - Bone marrow oedema [Unknown]
  - Gingivitis [Unknown]
  - Dental plaque [Unknown]
  - Myopia [Unknown]
  - Astigmatism [Unknown]
  - Gastrointestinal disorder [Unknown]
  - Intervertebral disc disorder [Unknown]
  - Osteonecrosis [Unknown]
  - Arthritis [Unknown]
  - Gait disturbance [Unknown]
  - Joint stiffness [Unknown]
  - Exostosis [Unknown]
  - Cartilage injury [Unknown]
  - Lumbar spinal stenosis [Unknown]
  - Lordosis [Unknown]
  - Arthropathy [Unknown]
  - Muscle contracture [Unknown]
  - Anaemia [Unknown]
  - Bone pain [Unknown]
  - Metastases to lung [Unknown]
  - Vertigo [Unknown]
  - Vertebral foraminal stenosis [Unknown]
  - Dilatation ventricular [Unknown]
  - Mitral valve incompetence [Unknown]
  - Tricuspid valve incompetence [Unknown]
  - Primary sequestrum [Unknown]
  - Back pain [Unknown]
  - Ligament disorder [Unknown]
  - Hypertrophy [Unknown]
  - Ventricular hypokinesia [Unknown]
  - Pleural fibrosis [Unknown]
  - Left atrial dilatation [Unknown]
  - Embolism venous [Unknown]
  - Osteoporosis [Unknown]
  - Obesity [Unknown]
